FAERS Safety Report 5400553-0 (Version None)
Quarter: 2007Q3

REPORT INFORMATION
  Report Type: 
  Country: None (occurrence: None)
  Receive Date: 20070725
  Receipt Date: 20070709
  Transmission Date: 20080115
  Serious: Yes (Disabling)
  Sender: FDA-Public Use
  Company Number: CIP07001245

PATIENT
  Age: 57 Year
  Sex: Female

DRUGS (2)
  1. ACTONEL WITH CALCIUM (COPACKAGED) [Suspect]
     Dosage: 1 TABLET DAILY CYCLIC, ORAL
     Route: 048
     Dates: start: 20060801, end: 20070301
  2. PANTOPRAZOLE SODIUM [Concomitant]

REACTIONS (2)
  - OSTEONECROSIS [None]
  - THYROID CANCER [None]
